FAERS Safety Report 16412906 (Version 2)
Quarter: 2019Q3

REPORT INFORMATION
  Report Type: Report from Study
  Country: US (occurrence: US)
  Receive Date: 20190611
  Receipt Date: 20190808
  Transmission Date: 20191004
  Serious: Yes (Hospitalization)
  Sender: FDA-Public Use
  Company Number: US-TAKEDA-2019TUS036172

PATIENT
  Sex: Female

DRUGS (1)
  1. PONATINIB [Suspect]
     Active Substance: PONATINIB
     Indication: CHRONIC MYELOID LEUKAEMIA
     Dosage: 45 MILLIGRAM, QD
     Route: 048
     Dates: start: 201906

REACTIONS (9)
  - Nail discolouration [Unknown]
  - Asthenia [Unknown]
  - Skin discolouration [Unknown]
  - Eye colour change [Unknown]
  - Bone pain [Unknown]
  - Fatigue [Unknown]
  - White blood cell count increased [Unknown]
  - Rash [Unknown]
  - Pain in extremity [Unknown]
